FAERS Safety Report 5707544-0 (Version None)
Quarter: 2008Q2

REPORT INFORMATION
  Report Type: 
  Country: None (occurrence: None)
  Receive Date: 20080416
  Receipt Date: 20080404
  Transmission Date: 20081010
  Serious: Yes (Hospitalization, Other)
  Sender: FDA-Public Use
  Company Number: JP-PFIZER INC-2007105927

PATIENT
  Sex: Female
  Weight: 45 kg

DRUGS (4)
  1. ZYVOX [Suspect]
     Indication: STAPHYLOCOCCAL INFECTION
     Route: 042
     Dates: start: 20071121, end: 20071127
  2. ZYVOX [Suspect]
     Route: 042
     Dates: start: 20071205, end: 20071211
  3. TARGOCID [Concomitant]
     Route: 042
     Dates: start: 20071110, end: 20071120
  4. HABEKACIN [Concomitant]
     Route: 042
     Dates: start: 20071110, end: 20071130

REACTIONS (1)
  - HYPONATRAEMIA [None]
